FAERS Safety Report 9113660 (Version 1)
Quarter: 2013Q1

REPORT INFORMATION
  Report Type: Spontaneous
  Country: US (occurrence: US)
  Receive Date: 20130208
  Receipt Date: 20130208
  Transmission Date: 20140127
  Serious: No
  Sender: FDA-Public Use
  Company Number: US-TEVA-384833USA

PATIENT
  Age: 55 Year
  Sex: Female

DRUGS (1)
  1. ACTIQ [Suspect]
     Indication: PAIN
     Route: 002

REACTIONS (3)
  - Drug effect decreased [Unknown]
  - Off label use [Unknown]
  - Drug prescribing error [Unknown]
